FAERS Safety Report 14638231 (Version 2)
Quarter: 2018Q1

REPORT INFORMATION
  Report Type: Report from Study
  Country: None (occurrence: CH)
  Receive Date: 20180314
  Receipt Date: 20180320
  Transmission Date: 20180509
  Serious: Yes (Death, Other)
  Sender: FDA-Public Use
  Company Number: CH-ABBVIE-18P-151-2282740-00

PATIENT
  Age: 71 Year
  Sex: Female

DRUGS (1)
  1. VENETOCLAX. [Suspect]
     Active Substance: VENETOCLAX
     Indication: ACUTE MYELOID LEUKAEMIA
     Dosage: MAINTENANCE DOSE
     Route: 048
     Dates: start: 201801

REACTIONS (5)
  - Coagulopathy [Unknown]
  - Acute myeloid leukaemia [Fatal]
  - Thrombocytopenia [Unknown]
  - Laboratory test abnormal [Unknown]
  - Haematology test abnormal [Unknown]

NARRATIVE: CASE EVENT DATE: 20180305
